FAERS Safety Report 10028264 (Version 1)
Quarter: 2014Q1

REPORT INFORMATION
  Report Type: Spontaneous
  Country: US (occurrence: None)
  Receive Date: 20140307
  Receipt Date: 20140307
  Transmission Date: 20141002
  Serious: Yes (Other)
  Sender: FDA-Public Use
  Company Number: 2014-US-002542

PATIENT
  Age: 37 Year
  Sex: Male

DRUGS (3)
  1. XYREM [Suspect]
     Indication: SLEEP DISORDER
     Dosage: DOSE ADJUSTMENTS, ORAL
     Dates: start: 200807, end: 2008
  2. XYREM [Suspect]
     Indication: NARCOLEPSY
     Dosage: DOSE ADJUSTMENTS, ORAL
     Dates: start: 200807, end: 2008
  3. XYREM [Suspect]
     Dosage: DOSE ADJUSTMENTS, ORAL
     Dates: start: 200807, end: 2008

REACTIONS (6)
  - Shoulder operation [None]
  - Therapy cessation [None]
  - Sleep terror [None]
  - Sleep paralysis [None]
  - Cataplexy [None]
  - Fatigue [None]
